FAERS Safety Report 8618809-7 (Version None)
Quarter: 2012Q3

REPORT INFORMATION
  Report Type: 
  Country: None (occurrence: None)
  Receive Date: 20120824
  Receipt Date: 20120821
  Transmission Date: 20120928
  Serious: Yes (Death, Hospitalization)
  Sender: FDA-Public Use
  Company Number: JP-JNJFOC-20120713903

PATIENT
  Sex: Male
  Weight: 28 kg

DRUGS (3)
  1. DOGMATYL [Concomitant]
     Indication: DEPRESSION
     Route: 048
     Dates: end: 20120207
  2. MUCOSTA [Concomitant]
     Indication: GASTRITIS
     Route: 048
     Dates: end: 20120207
  3. GALANTAMINE HYDROBROMIDE [Suspect]
     Indication: DEMENTIA ALZHEIMER'S TYPE
     Route: 048
     Dates: start: 20120112, end: 20120205

REACTIONS (1)
  - DEMENTIA ALZHEIMER'S TYPE [None]
